FAERS Safety Report 4825259-8 (Version None)
Quarter: 2005Q4

REPORT INFORMATION
  Report Type: 
  Country: None (occurrence: None)
  Receive Date: 20051109
  Receipt Date: 20051103
  Transmission Date: 20060501
  Serious: Yes (Hospitalization, Other)
  Sender: FDA-Public Use
  Company Number: HQWYE012131MAY05

PATIENT
  Age: 39 Year
  Sex: Male

DRUGS (4)
  1. ADVIL [Suspect]
     Indication: PHARYNGOLARYNGEAL PAIN
     Dosage: ORAL
     Route: 048
     Dates: start: 20050307, end: 20050309
  2. CARBOCISTEINE (CARBOCISTEINE) [Suspect]
     Indication: PHARYNGOLARYNGEAL PAIN
     Dates: start: 20050307, end: 20050309
  3. LAMISIL [Suspect]
     Dates: start: 20050301, end: 20050308
  4. PHOLCODINE TAB [Suspect]
     Indication: PHARYNGOLARYNGEAL PAIN
     Dates: start: 20050307, end: 20050309

REACTIONS (1)
  - ACUTE GENERALISED EXANTHEMATOUS PUSTULOSIS [None]
